FAERS Safety Report 4835714-2 (Version None)
Quarter: 2005Q4

REPORT INFORMATION
  Report Type: 
  Country: None (occurrence: None)
  Receive Date: 20051123
  Receipt Date: 20051111
  Transmission Date: 20060501
  Serious: Yes (Other)
  Sender: FDA-Public Use
  Company Number: US-JNJFOC-20051005294

PATIENT
  Sex: Female
  Weight: 74.84 kg

DRUGS (8)
  1. REMICADE [Suspect]
     Route: 042
  2. REMICADE [Suspect]
     Indication: CROHN'S DISEASE
     Route: 042
  3. BENADRYL [Concomitant]
     Indication: PREMEDICATION
  4. 6MP [Concomitant]
     Indication: CROHN'S DISEASE
  5. NEURONTIN [Concomitant]
  6. NEURONTIN [Concomitant]
  7. SOMA [Concomitant]
  8. ULTRAM [Concomitant]
     Indication: PAIN

REACTIONS (3)
  - HYPOAESTHESIA [None]
  - VERTIGO POSITIONAL [None]
  - VISION BLURRED [None]
